FAERS Safety Report 16467980 (Version 1)
Quarter: 2019Q2

REPORT INFORMATION
  Report Type: Spontaneous
  Country: US (occurrence: US)
  Receive Date: 20190624
  Receipt Date: 20190624
  Transmission Date: 20190711
  Serious: No
  Sender: FDA-Public Use
  Company Number: US-ASTRAZENECA-2019SE84611

PATIENT
  Sex: Female
  Weight: 76.7 kg

DRUGS (1)
  1. FASENRA [Suspect]
     Active Substance: BENRALIZUMAB
     Indication: ASTHMA
     Route: 058
     Dates: start: 20190428

REACTIONS (4)
  - Oropharyngeal pain [Unknown]
  - Wheezing [Unknown]
  - Fungal infection [Unknown]
  - Cough [Unknown]
